FAERS Safety Report 11867631 (Version 1)
Quarter: 2015Q4

REPORT INFORMATION
  Report Type: Spontaneous
  Country: US (occurrence: US)
  Receive Date: 20151224
  Receipt Date: 20151224
  Transmission Date: 20160305
  Serious: No
  Sender: FDA-Public Use
  Company Number: PHEH2015US026159

PATIENT
  Sex: Female

DRUGS (2)
  1. GLEEVEC [Suspect]
     Active Substance: IMATINIB MESYLATE
     Indication: CHRONIC MYELOID LEUKAEMIA
     Route: 065
  2. TASIGNA [Suspect]
     Active Substance: NILOTINIB
     Indication: CHRONIC MYELOID LEUKAEMIA
     Route: 065

REACTIONS (22)
  - Cough [Unknown]
  - Decreased activity [Unknown]
  - Euphoric mood [Unknown]
  - Pruritus [Unknown]
  - Muscle spasms [Unknown]
  - Rash [Unknown]
  - Diarrhoea [Unknown]
  - Night sweats [Unknown]
  - Back pain [Unknown]
  - Nausea [Unknown]
  - Insomnia [Unknown]
  - Body temperature increased [Unknown]
  - Alopecia [Unknown]
  - Contusion [Unknown]
  - Migraine [Unknown]
  - Weight decreased [Unknown]
  - Myalgia [Unknown]
  - Oral herpes [Unknown]
  - Fatigue [Unknown]
  - Arthralgia [Unknown]
  - Constipation [Unknown]
  - Hyperhidrosis [Unknown]
